FAERS Safety Report 8520023-0 (Version None)
Quarter: 2012Q3

REPORT INFORMATION
  Report Type: 
  Country: None (occurrence: None)
  Receive Date: 20120719
  Receipt Date: 20120716
  Transmission Date: 20120928
  Serious: No
  Sender: FDA-Public Use
  Company Number: US-PFIZER INC-2012171256

PATIENT
  Sex: Female
  Weight: 106 kg

DRUGS (2)
  1. ADVIL MIGRAINE LIQUI-GELS [Suspect]
     Indication: MIGRAINE
     Dosage: UNK, AS NEEDED
     Dates: start: 20120101
  2. IMITREX [Suspect]
     Indication: HEADACHE
     Dosage: 100 MG, UNK

REACTIONS (3)
  - DRUG INEFFECTIVE [None]
  - HEADACHE [None]
  - MALAISE [None]
